FAERS Safety Report 18732038 (Version 1)
Quarter: 2021Q1

REPORT INFORMATION
  Report Type: Spontaneous
  Country: FR (occurrence: FR)
  Receive Date: 20210112
  Receipt Date: 20210112
  Transmission Date: 20210419
  Serious: Yes (Hospitalization)
  Sender: FDA-Public Use
  Company Number: FR-009507513-2101FRA003629

PATIENT
  Age: 60 Year
  Sex: Male
  Weight: 62 kg

DRUGS (11)
  1. TERCIAN [Suspect]
     Active Substance: CYAMEMAZINE
     Dosage: 3 DOSAGE FORM, QD
     Route: 048
     Dates: end: 20200305
  2. PERINDOPRIL [Concomitant]
     Active Substance: PERINDOPRIL
     Dosage: UNK
  3. IMOVANE [Suspect]
     Active Substance: ZOPICLONE
     Dosage: 1 DOSAGE FORM, QD
     Route: 048
     Dates: end: 20200305
  4. VALIUM [Suspect]
     Active Substance: DIAZEPAM
     Dosage: 3 DOSAGE FORM, QD
     Route: 048
     Dates: end: 20200305
  5. RELVAR ELLIPTA [Concomitant]
     Active Substance: FLUTICASONE FUROATE\VILANTEROL TRIFENATATE
     Dosage: UNK
  6. TIAPRIDAL [Suspect]
     Active Substance: TIAPRIDE HYDROCHLORIDE
     Dosage: 2 DOSAGE FORM, QD
     Route: 048
     Dates: end: 20200305
  7. TERALITHE [Suspect]
     Active Substance: LITHIUM CARBONATE
     Dosage: 800 MILLIGRAM, QD
     Route: 048
     Dates: end: 20200305
  8. VALSARTAN. [Concomitant]
     Active Substance: VALSARTAN
     Dosage: UNK
  9. DAFALGAN [Concomitant]
     Active Substance: ACETAMINOPHEN
     Dosage: UNK
  10. MIRTAZAPINE. [Suspect]
     Active Substance: MIRTAZAPINE
     Dosage: 1 DOSAGE FORM, QD
     Route: 048
     Dates: end: 20200305
  11. INCRUSE ELLIPTA [Concomitant]
     Active Substance: UMECLIDINIUM BROMIDE
     Dosage: UNK

REACTIONS (4)
  - Antipsychotic drug level increased [Recovered/Resolved]
  - Dysarthria [Recovered/Resolved with Sequelae]
  - Overdose [Recovered/Resolved]
  - Confusional state [Recovered/Resolved]

NARRATIVE: CASE EVENT DATE: 20200303
